FAERS Safety Report 9252003 (Version 1)
Quarter: 2013Q1

REPORT INFORMATION
  Report Type: Spontaneous
  Country: US (occurrence: None)
  Receive Date: 20130305
  Receipt Date: 20130305
  Transmission Date: 20140127
  Serious: Yes (Other)
  Sender: FDA-Public Use
  Company Number: 163-21880-12091005

PATIENT
  Age: 75 Year
  Sex: Female
  Weight: 63.5 kg

DRUGS (9)
  1. REVLIMID [Suspect]
     Indication: PLASMA CELL MYELOMA
     Dosage: 18.75 MG, 21 IN 28 D
     Route: 048
     Dates: start: 20120424
  2. SINGULAIR [Concomitant]
  3. LUMIGAN (BIMATOPROST) [Concomitant]
  4. ALPHAGAN (BRIMONIDINE TARTRATE) [Concomitant]
  5. LOSARTAN (LOSARTAN) [Concomitant]
  6. METOPROLOL (METOPROLOL) [Concomitant]
  7. FELODIPINE ER (FELODIPINE) (UNKNOWN) [Concomitant]
  8. DICLOFENAC (DICLOFENAC) [Concomitant]
  9. OMEPRAZOLE (OMEPRAZOLE) [Concomitant]

REACTIONS (1)
  - Neutropenia [None]
